FAERS Safety Report 9911498 (Version 1)
Quarter: 2014Q1

REPORT INFORMATION
  Report Type: Report from Study
  Country: AU (occurrence: AU)
  Receive Date: 20140219
  Receipt Date: 20140219
  Transmission Date: 20141002
  Serious: Yes (Hospitalization)
  Sender: FDA-Public Use
  Company Number: PHHY2014AU019082

PATIENT
  Age: 56 Year
  Sex: Male

DRUGS (5)
  1. ACLASTA [Suspect]
     Dosage: 5 MG
     Route: 042
  2. ACLASTA [Suspect]
     Dosage: 5 MG
     Route: 042
     Dates: start: 20100617
  3. ACLASTA [Suspect]
     Dosage: 5 MG
     Route: 042
     Dates: start: 20110726
  4. ACLASTA [Suspect]
     Dosage: 5 MG
     Route: 042
     Dates: start: 20120822
  5. ACLASTA [Suspect]
     Dosage: 5 MG
     Route: 042
     Dates: start: 20140211

REACTIONS (3)
  - Hot flush [Unknown]
  - Dyspnoea [Unknown]
  - Drug hypersensitivity [Unknown]
